FAERS Safety Report 25947101 (Version 2)
Quarter: 2025Q4

REPORT INFORMATION
  Report Type: Spontaneous
  Country: EU (occurrence: EU)
  Receive Date: 20251022
  Receipt Date: 20251222
  Transmission Date: 20260118
  Serious: Yes (Other)
  Sender: RHYTHM PHARMACEUTICALS
  Company Number: EU-RHYTHM PHARMACEUTICALS NETHERLANDS B.V-2025RHM000364

PATIENT

DRUGS (20)
  1. IMCIVREE [Suspect]
     Active Substance: SETMELANOTIDE
     Indication: Obesity
     Dosage: 0.5 MILLIGRAM, QD
     Dates: start: 20250603
  2. IMCIVREE [Suspect]
     Active Substance: SETMELANOTIDE
     Dosage: 2 MILLIGRAM, QD
     Dates: end: 20250624
  3. IMCIVREE [Suspect]
     Active Substance: SETMELANOTIDE
     Dosage: 3 MILLIGRAM, QD
     Dates: start: 20250625, end: 20250627
  4. IMCIVREE [Suspect]
     Active Substance: SETMELANOTIDE
     Dosage: 2 MILLIGRAM, QD
     Dates: start: 20250628
  5. IMCIVREE [Suspect]
     Active Substance: SETMELANOTIDE
     Dosage: 2 MILLIGRAM, QD
     Dates: start: 20250701
  6. IMCIVREE [Suspect]
     Active Substance: SETMELANOTIDE
     Dosage: 2.5 MILLIGRAM
     Dates: start: 20250903
  7. IMCIVREE [Suspect]
     Active Substance: SETMELANOTIDE
     Dosage: 2 MILLIGRAM, QD
     Dates: end: 20251009
  8. HYDROCORTISONE [Concomitant]
     Active Substance: HYDROCORTISONE
     Indication: Hypopituitarism
     Dosage: UNK
     Dates: start: 2000
  9. SPIRONOLACTONE [Concomitant]
     Active Substance: SPIRONOLACTONE
     Indication: Hypopituitarism
     Dosage: UNK
  10. SPIRONOLACTONE [Concomitant]
     Active Substance: SPIRONOLACTONE
     Indication: Cardiac failure
  11. LEVOTHYROXINE [Concomitant]
     Active Substance: LEVOTHYROXINE
     Indication: Hypopituitarism
     Dosage: UNK
     Dates: start: 2000
  12. LEVOTHYROXINE [Concomitant]
     Active Substance: LEVOTHYROXINE
     Indication: Hypothyroidism
  13. FUROSEMIDE [Concomitant]
     Active Substance: FUROSEMIDE
     Indication: Pulmonary arterial hypertension
     Dosage: UNK
  14. POTASSIUM CHLORIDE [Concomitant]
     Active Substance: POTASSIUM CHLORIDE
     Indication: Pulmonary arterial hypertension
     Dosage: UNK
  15. POTASSIUM CHLORIDE [Concomitant]
     Active Substance: POTASSIUM CHLORIDE
     Indication: Mineral supplementation
  16. PROPRANOLOL [Concomitant]
     Active Substance: PROPRANOLOL HYDROCHLORIDE
     Indication: Pulmonary arterial hypertension
     Dosage: 80
  17. REVATIO [Concomitant]
     Active Substance: SILDENAFIL CITRATE
     Indication: Pulmonary arterial hypertension
     Dosage: 20
  18. REVATIO [Concomitant]
     Active Substance: SILDENAFIL CITRATE
     Indication: Cardiac failure
  19. AMBRISENTAN [Concomitant]
     Active Substance: AMBRISENTAN
     Indication: Pulmonary arterial hypertension
     Dosage: UNK
  20. CETIRIZINE [Concomitant]
     Active Substance: CETIRIZINE HYDROCHLORIDE
     Indication: Hypersensitivity
     Dosage: UNK

REACTIONS (8)
  - Cerebral ischaemia [Unknown]
  - Transient ischaemic attack [Unknown]
  - Headache [Unknown]
  - Off label use [Recovered/Resolved]
  - Hyponatraemia [Recovered/Resolved]
  - Back pain [Recovered/Resolved]
  - Diarrhoea [Recovered/Resolved]
  - Injection site discolouration [Not Recovered/Not Resolved]

NARRATIVE: CASE EVENT DATE: 20250601
